FAERS Safety Report 20375750 (Version 3)
Quarter: 2022Q2

REPORT INFORMATION
  Report Type: Report from Study
  Country: US (occurrence: US)
  Receive Date: 20220125
  Receipt Date: 20220419
  Transmission Date: 20220721
  Serious: Yes (Other)
  Sender: FDA-Public Use
  Company Number: US-GILEAD-2022-0566540

PATIENT
  Age: 69 Year
  Sex: Female

DRUGS (1)
  1. IDELALISIB [Suspect]
     Active Substance: IDELALISIB
     Indication: Follicular lymphoma
     Dosage: 100 MG, BID
     Route: 048
     Dates: start: 20180423

REACTIONS (6)
  - Lymphoma [Unknown]
  - Therapeutic response unexpected [Not Recovered/Not Resolved]
  - Immune system disorder [Unknown]
  - Therapeutic response unexpected [Unknown]
  - Off label use [Not Recovered/Not Resolved]
  - Antibody test negative [Unknown]

NARRATIVE: CASE EVENT DATE: 20190108
